FAERS Safety Report 24041807 (Version 2)
Quarter: 2024Q3

REPORT INFORMATION
  Report Type: Spontaneous
  Country: US (occurrence: US)
  Receive Date: 20240702
  Receipt Date: 20240730
  Transmission Date: 20241017
  Serious: No
  Sender: MYLAN
  Company Number: US-MYLANLABS-2024M1061132

PATIENT
  Sex: Male
  Weight: 58.97 kg

DRUGS (1)
  1. EPIPEN [Suspect]
     Active Substance: EPINEPHRINE
     Indication: Food allergy
     Dosage: 0.3 MILLIGRAM (ONLY AS NEEDED)
     Route: 065

REACTIONS (2)
  - Liquid product physical issue [None]
  - Product quality issue [None]
